FAERS Safety Report 23186428 (Version 2)
Quarter: 2024Q2

REPORT INFORMATION
  Report Type: Spontaneous
  Country: US (occurrence: US)
  Receive Date: 20231115
  Receipt Date: 20240618
  Transmission Date: 20240716
  Serious: No
  Sender: FDA-Public Use
  Company Number: US-SA-SAC20231108000359

PATIENT
  Age: 42 Year
  Sex: Female

DRUGS (4)
  1. DUPIXENT [Suspect]
     Active Substance: DUPILUMAB
     Indication: Dermatitis atopic
     Dosage: 300 MG, QOW
     Route: 058
     Dates: start: 20230328
  2. AMLODIPINE BESYLATE [Concomitant]
     Active Substance: AMLODIPINE BESYLATE
     Dosage: UNK
  3. ASPIRIN [Concomitant]
     Active Substance: ASPIRIN
  4. VITAMINS NOS [Concomitant]
     Active Substance: VITAMINS

REACTIONS (6)
  - Dermatitis atopic [Not Recovered/Not Resolved]
  - Dry skin [Not Recovered/Not Resolved]
  - Pruritus [Not Recovered/Not Resolved]
  - Skin irritation [Not Recovered/Not Resolved]
  - Skin swelling [Not Recovered/Not Resolved]
  - Erythema [Not Recovered/Not Resolved]

NARRATIVE: CASE EVENT DATE: 20240601
